FAERS Safety Report 25254992 (Version 1)
Quarter: 2025Q2

REPORT INFORMATION
  Report Type: Spontaneous
  Country: JP (occurrence: JP)
  Receive Date: 20250430
  Receipt Date: 20250430
  Transmission Date: 20250716
  Serious: Yes (Hospitalization, Other)
  Sender: MERCK SHARP & DOHME LLC
  Company Number: JP-009507513-2281373

PATIENT
  Age: 78 Year
  Sex: Male

DRUGS (3)
  1. PEMBROLIZUMAB [Suspect]
     Active Substance: PEMBROLIZUMAB
     Indication: Cholangiocarcinoma
  2. GEMCITABINE [Suspect]
     Active Substance: GEMCITABINE
     Indication: Bile duct cancer
  3. CISPLATIN [Suspect]
     Active Substance: CISPLATIN
     Indication: Bile duct cancer

REACTIONS (11)
  - Gallbladder enlargement [Unknown]
  - White blood cell count increased [Unknown]
  - Liver abscess [Unknown]
  - Pyrexia [Recovered/Resolved]
  - Pyrexia [Unknown]
  - Rash [Recovered/Resolved]
  - Immune-mediated cholangitis [Unknown]
  - Pyrexia [Unknown]
  - Device occlusion [Unknown]
  - Hepatic enzyme increased [Unknown]
  - C-reactive protein increased [Unknown]
